FAERS Safety Report 10399058 (Version 3)
Quarter: 2014Q3

REPORT INFORMATION
  Report Type: Report from Study
  Country: DE (occurrence: DE)
  Receive Date: 20140821
  Receipt Date: 20140825
  Transmission Date: 20150326
  Serious: Yes (Hospitalization)
  Sender: FDA-Public Use
  Company Number: DE-ROCHE-1179882

PATIENT
  Age: 77 Year
  Sex: Female
  Weight: 77 kg

DRUGS (10)
  1. BEVACIZUMAB [Suspect]
     Active Substance: BEVACIZUMAB
     Indication: OVARIAN CANCER
     Route: 042
     Dates: start: 20120531, end: 20120531
  2. BEVACIZUMAB [Suspect]
     Active Substance: BEVACIZUMAB
     Route: 042
     Dates: start: 20120823, end: 20120823
  3. CARBOPLATIN. [Suspect]
     Active Substance: CARBOPLATIN
     Indication: PERITONEAL NEOPLASM
     Route: 042
     Dates: start: 20120531, end: 20120531
  4. BISOPROLOL [Concomitant]
     Active Substance: BISOPROLOL
     Route: 048
  5. RAMIPRIL. [Concomitant]
     Active Substance: RAMIPRIL
     Route: 048
  6. CARBOPLATIN. [Suspect]
     Active Substance: CARBOPLATIN
     Route: 042
     Dates: start: 20120823, end: 20120823
  7. PACLITAXEL. [Suspect]
     Active Substance: PACLITAXEL
     Dosage: DATE OF LAST DOSE PRIOR TO SAE: 23/AUG/2013
     Route: 042
     Dates: start: 20120510
  8. CARBOPLATIN. [Suspect]
     Active Substance: CARBOPLATIN
     Dosage: DATE OF LAST DOSE PRIOR TO SAE:23/AUG/2012
     Route: 042
     Dates: start: 20120510
  9. PACLITAXEL. [Suspect]
     Active Substance: PACLITAXEL
     Indication: OVARIAN CANCER
     Route: 042
     Dates: start: 20120531, end: 20120531
  10. PACLITAXEL. [Suspect]
     Active Substance: PACLITAXEL
     Route: 042
     Dates: start: 20120823, end: 20130823

REACTIONS (1)
  - Syncope [Recovered/Resolved]

NARRATIVE: CASE EVENT DATE: 20120827
